FAERS Safety Report 24327916 (Version 3)
Quarter: 2025Q4

REPORT INFORMATION
  Report Type: Spontaneous
  Country: US (occurrence: US)
  Receive Date: 20240917
  Receipt Date: 20251210
  Transmission Date: 20260117
  Serious: Yes (Other)
  Sender: PFIZER
  Company Number: US-PFIZER INC-PV202400120615

PATIENT
  Age: 82 Year
  Sex: Female

DRUGS (1)
  1. ESTRING [Suspect]
     Active Substance: ESTRADIOL
     Indication: Atrophic vulvovaginitis
     Dosage: 2 MG (7.5 MCG /24 HOUR) VAGL RING INSERT PER VAGINA EVERY 3 MONTHS
     Route: 067

REACTIONS (4)
  - Cerebrovascular accident [Unknown]
  - Memory impairment [Unknown]
  - Panic disorder [Unknown]
  - Hypersensitivity [Unknown]
